FAERS Safety Report 7250521-1 (Version None)
Quarter: 2011Q1

REPORT INFORMATION
  Report Type: 
  Country: None (occurrence: None)
  Receive Date: 20110128
  Receipt Date: 20110120
  Transmission Date: 20110831
  Serious: Yes (Hospitalization)
  Sender: FDA-Public Use
  Company Number: PHHY2011NL05092

PATIENT
  Sex: Male

DRUGS (3)
  1. ZOMETA [Suspect]
     Dosage: 4MG/ 5 ML, EVERY 28 DAYS
     Route: 042
     Dates: start: 20110120
  2. ZOMETA [Suspect]
     Indication: PROSTATE CANCER METASTATIC
     Dosage: 4MG/ 5 ML, EVERY 28 DAYS
     Route: 042
     Dates: start: 20100928
  3. ZOMETA [Suspect]
     Dosage: 4MG/ 5 ML, EVERY 28 DAYS
     Route: 042
     Dates: start: 20101223

REACTIONS (2)
  - PULMONARY EMBOLISM [None]
  - DYSPNOEA [None]
